FAERS Safety Report 26215004 (Version 1)
Quarter: 2025Q4

REPORT INFORMATION
  Report Type: Spontaneous
  Country: US (occurrence: US)
  Receive Date: 20251230
  Receipt Date: 20251230
  Transmission Date: 20260117
  Serious: Yes (Hospitalization)
  Sender: Pyros Pharmaceuticals
  Company Number: US-PYROS PHARMACEUTICALS, INC-20250901235

PATIENT

DRUGS (1)
  1. VIGAFYDE [Suspect]
     Active Substance: VIGABATRIN
     Indication: Infantile spasms
     Dosage: 575 MG (5.75 ML) BID
     Dates: start: 20250801

REACTIONS (2)
  - Somnolence [Recovered/Resolved]
  - Toxicity to various agents [Recovered/Resolved]

NARRATIVE: CASE EVENT DATE: 20250101
